FAERS Safety Report 9541791 (Version 3)
Quarter: 2013Q4

REPORT INFORMATION
  Report Type: Spontaneous
  Country: US (occurrence: US)
  Receive Date: 20130923
  Receipt Date: 20131108
  Transmission Date: 20140711
  Serious: Yes (Life-Threatening, Hospitalization)
  Sender: FDA-Public Use
  Company Number: US-JNJFOC-20130908742

PATIENT
  Age: 52 Year
  Sex: Male
  Weight: 111.13 kg

DRUGS (3)
  1. STELARA [Suspect]
     Indication: PSORIASIS
     Route: 058
     Dates: start: 20130606
  2. STELARA [Suspect]
     Indication: PSORIASIS
     Route: 058
     Dates: start: 20130909
  3. STELARA [Suspect]
     Indication: PSORIASIS
     Route: 058
     Dates: start: 201109

REACTIONS (1)
  - Myocardial infarction [Recovering/Resolving]
